FAERS Safety Report 21092279 (Version 2)
Quarter: 2022Q3

REPORT INFORMATION
  Report Type: Spontaneous
  Country: FR (occurrence: FR)
  Receive Date: 20220718
  Receipt Date: 20220730
  Transmission Date: 20221027
  Serious: Yes (Hospitalization)
  Sender: FDA-Public Use
  Company Number: FR-AFSSAPS-RE20220947

PATIENT
  Age: 84 Year
  Sex: Female
  Weight: 66 kg

DRUGS (4)
  1. PERINDOPRIL [Suspect]
     Active Substance: PERINDOPRIL
     Indication: Hypertension
     Dosage: 10 MILLIGRAM, ONCE A DAY
     Route: 048
  2. PERINDOPRIL [Suspect]
     Active Substance: PERINDOPRIL
     Dosage: 4 MILLIGRAM, ONCE A DAY, QD (TAKEN IN THE EVENING)
     Route: 065
     Dates: start: 20220610
  3. LERCANIDIPINE [Suspect]
     Active Substance: LERCANIDIPINE
     Indication: Hypertension
     Dosage: 10 MILLIGRAM, ONCE A DAY
     Route: 048
  4. SOTALOL [Suspect]
     Active Substance: SOTALOL
     Indication: Tachycardia
     Dosage: 80 MILLIGRAM, ONCE A DAY
     Route: 048

REACTIONS (2)
  - General physical health deterioration [Recovered/Resolved]
  - Orthostatic hypotension [Recovered/Resolved]

NARRATIVE: CASE EVENT DATE: 20220610
